FAERS Safety Report 22358520 (Version 1)
Quarter: 2023Q2

REPORT INFORMATION
  Report Type: Report from Study
  Country: BR (occurrence: BR)
  Receive Date: 20230524
  Receipt Date: 20230524
  Transmission Date: 20230722
  Serious: Yes (Death, Other)
  Sender: FDA-Public Use
  Company Number: BR-CELLTRION INC.-2022BR016340

PATIENT

DRUGS (7)
  1. INFLIXIMAB [Suspect]
     Active Substance: INFLIXIMAB
     Indication: Osteoarthritis
     Dosage: TWO AMPOULES FROM TWO TO THREE MONTHS (DATE START: MORE THAN TEN YEARS AGO)
     Route: 042
  2. QUETIAPINE [Concomitant]
     Active Substance: QUETIAPINE
     Indication: Dementia Alzheimer^s type
     Dosage: ONE CAPSULE PER DAY (2 YEARS AGO)
     Route: 048
  3. METFORMIN HYDROCHLORIDE [Concomitant]
     Active Substance: METFORMIN HYDROCHLORIDE
     Indication: Diabetes mellitus
     Dosage: TWO CAPSULES PER DAY (2 YEARS AGO)
     Route: 048
  4. PROPRANOLOL HYDROCHLORIDE [Concomitant]
     Active Substance: PROPRANOLOL HYDROCHLORIDE
     Indication: Hypertension
     Dosage: HALF CAPSULE PER DAY (2 YEARS AGO)
     Route: 048
  5. OLANZAPINE [Concomitant]
     Active Substance: OLANZAPINE
     Dosage: TWO OR THREE CAPSULES PER DAY (2 YEARS AGO)
     Route: 048
  6. DESVENLAFAXINE [Concomitant]
     Active Substance: DESVENLAFAXINE
     Indication: Dementia Alzheimer^s type
     Dosage: TWO CAPSULES PER DAY (2 YEARS AGO)
     Route: 048
  7. MEMANTINE [Concomitant]
     Active Substance: MEMANTINE
     Indication: Dementia Alzheimer^s type
     Dosage: TWO CAPSULES PER DAY (2 YEARS AGO)
     Route: 048

REACTIONS (2)
  - Death [Fatal]
  - Intentional product use issue [Unknown]
